FAERS Safety Report 6208933-0 (Version None)
Quarter: 2009Q2

REPORT INFORMATION
  Report Type: 
  Country: None (occurrence: None)
  Receive Date: 20090529
  Receipt Date: 20090519
  Transmission Date: 20091009
  Serious: Yes (Hospitalization)
  Sender: FDA-Public Use
  Company Number: US-MERCK-0904USA00824

PATIENT
  Age: 68 Year
  Sex: Female
  Weight: 70 kg

DRUGS (3)
  1. FOSAMAX [Suspect]
     Indication: OSTEOPOROSIS
     Route: 048
     Dates: start: 20080901, end: 20081001
  2. FOSAMAX [Suspect]
     Route: 048
     Dates: start: 20050101, end: 20080901
  3. FOSAMAX [Suspect]
     Route: 048
     Dates: start: 20081001

REACTIONS (11)
  - ARTHRALGIA [None]
  - BONE PAIN [None]
  - DEHYDRATION [None]
  - DIZZINESS [None]
  - ESSENTIAL HYPERTENSION [None]
  - EXOSTOSIS [None]
  - FOOD POISONING [None]
  - GINGIVAL ATROPHY [None]
  - ORTHOSTATIC HYPOTENSION [None]
  - OSTEOPOROSIS [None]
  - RASH [None]
